FAERS Safety Report 8888790 (Version 1)
Quarter: 2012Q4

REPORT INFORMATION
  Report Type: 
  Country: MX (occurrence: MX)
  Receive Date: 20121106
  Receipt Date: 20121106
  Transmission Date: 20130627
  Serious: Yes (Death, Other)
  Sender: FDA-Public Use
  Company Number: MX-JNJFOC-20121102441

PATIENT
  Sex: Female
  Weight: 63 kg

DRUGS (8)
  1. XARELTO [Suspect]
     Indication: DEEP VEIN THROMBOSIS
     Route: 048
  2. XARELTO [Suspect]
     Indication: ATRIAL FIBRILLATION
     Route: 048
  3. PREGABALIN [Concomitant]
     Indication: ABDOMINAL PAIN UPPER
     Route: 048
     Dates: start: 2012
  4. TROXERUTIN [Concomitant]
     Indication: DEEP VEIN THROMBOSIS
     Route: 048
     Dates: start: 2012
  5. METOPROLOL [Concomitant]
     Indication: HYPERTENSION
     Route: 048
     Dates: start: 2002
  6. CILOSTAZOL [Concomitant]
     Indication: DEEP VEIN THROMBOSIS
     Route: 048
     Dates: start: 2012
  7. SERRAPEPTASE [Concomitant]
     Indication: DEEP VEIN THROMBOSIS
     Route: 048
     Dates: start: 2012
  8. AMIODARONE [Concomitant]
     Route: 048
     Dates: start: 2011

REACTIONS (4)
  - Multi-organ failure [Fatal]
  - Septic shock [Fatal]
  - Bile duct stone [Unknown]
  - Flank pain [Unknown]
